FAERS Safety Report 6946470-6 (Version None)
Quarter: 2010Q3

REPORT INFORMATION
  Report Type: 
  Country: None (occurrence: None)
  Receive Date: 20100827
  Receipt Date: 20090731
  Transmission Date: 20110219
  Serious: No
  Sender: FDA-Public Use
  Company Number: US-ABBOTT-09P-163-0588581-00

PATIENT
  Sex: Male
  Weight: 78.088 kg

DRUGS (1)
  1. NIASPAN [Suspect]
     Indication: BLOOD CHOLESTEROL INCREASED
     Dosage: 500/20 TAKEN AT BEDTIME
     Dates: start: 20090701

REACTIONS (1)
  - DYSPEPSIA [None]
